FAERS Safety Report 5704884-6 (Version None)
Quarter: 2008Q2

REPORT INFORMATION
  Report Type: 
  Country: None (occurrence: None)
  Receive Date: 20080414
  Receipt Date: 20080403
  Transmission Date: 20081010
  Serious: Yes (Hospitalization)
  Sender: FDA-Public Use
  Company Number: FR-BOEHRINGER INGELHEIM GMBH, GERMANY-2008-FF-00267FF

PATIENT
  Age: 78 Year
  Sex: Female

DRUGS (1)
  1. VIRAMUNE [Suspect]
     Indication: ACQUIRED IMMUNODEFICIENCY SYNDROME
     Route: 048
     Dates: start: 20080213, end: 20080221

REACTIONS (2)
  - CONJUNCTIVITIS [None]
  - RASH MACULO-PAPULAR [None]
